FAERS Safety Report 19541488 (Version 1)
Quarter: 2021Q3

REPORT INFORMATION
  Report Type: Spontaneous
  Country: KZ (occurrence: KZ)
  Receive Date: 20210713
  Receipt Date: 20210713
  Transmission Date: 20211014
  Serious: Yes (Death, Other)
  Sender: FDA-Public Use
  Company Number: KZ-JNJFOC-20210726921

PATIENT
  Age: 45 Year
  Sex: Female

DRUGS (3)
  1. XARELTO [Suspect]
     Active Substance: RIVAROXABAN
     Indication: VENOUS THROMBOSIS LIMB
     Dosage: 15 MG, BID
     Route: 048
     Dates: start: 202106
  2. WARFARIN [Concomitant]
     Active Substance: WARFARIN
     Dosage: UNK
  3. XARELTO [Suspect]
     Active Substance: RIVAROXABAN
     Indication: PULMONARY EMBOLISM

REACTIONS (3)
  - Haemoptysis [Unknown]
  - Pulmonary haemorrhage [Fatal]
  - COVID-19 [Fatal]
